FAERS Safety Report 9564762 (Version 1)
Quarter: 2013Q3

REPORT INFORMATION
  Report Type: Spontaneous
  Country: US (occurrence: US)
  Receive Date: 20130930
  Receipt Date: 20130930
  Transmission Date: 20140515
  Serious: No
  Sender: FDA-Public Use
  Company Number: US-PFIZER INC-2013279702

PATIENT
  Age: 27 Year
  Sex: Female
  Weight: 122 kg

DRUGS (4)
  1. NEURONTIN [Suspect]
     Indication: FIBROMYALGIA
     Dosage: 2700 MG, 2X/DAY
     Dates: start: 2006, end: 2012
  2. ALBUTEROL [Concomitant]
     Indication: ASTHMA
     Dosage: UNK
  3. FLOVENT HFA [Concomitant]
     Indication: ASTHMA
     Dosage: 220 MG, EVERY 4 HRS
  4. METHADONE [Concomitant]
     Dosage: UNK

REACTIONS (4)
  - Off label use [Recovered/Resolved]
  - Overdose [Recovered/Resolved]
  - Pain [Unknown]
  - Malaise [Unknown]
